FAERS Safety Report 5369953-1 (Version None)
Quarter: 2007Q2

REPORT INFORMATION
  Report Type: 
  Country: None (occurrence: None)
  Receive Date: 20070621
  Receipt Date: 20070619
  Transmission Date: 20071010
  Serious: Yes (Other)
  Sender: FDA-Public Use
  Company Number: TPG2007A00411

PATIENT
  Age: 70 Year
  Sex: Female

DRUGS (9)
  1. LANSOPRAZOLE [Suspect]
     Indication: GASTROOESOPHAGEAL REFLUX DISEASE
     Dosage: SEE IMAGE; 3 YEARS AGO
     Route: 048
     Dates: end: 20070320
  2. LANSOPRAZOLE [Suspect]
     Indication: GASTROOESOPHAGEAL REFLUX DISEASE
     Dosage: SEE IMAGE; 3 YEARS AGO
     Route: 048
     Dates: end: 20070320
  3. ASPIRIN CARDIO                 (ACETYLSALICYLIC ACID) (TABLETS) [Suspect]
     Indication: DRUG USE FOR UNKNOWN INDICATION
     Dates: end: 20061201
  4. SERTRALINE                             (50 MILLIGRAM, TABLETS) [Suspect]
     Indication: DRUG USE FOR UNKNOWN INDICATION
     Dosage: 50 MG
     Route: 048
     Dates: end: 20070327
  5. BLOPRESS PLUS                      (TABLETS) [Concomitant]
  6. MEPHANOL                            (ALLOPURINOL) [Concomitant]
  7. TILUR            (ACEMETACIN) [Concomitant]
  8. ACETAMINOPHEN [Concomitant]
  9. SYMCORA                   (SIMVASTATIN) (TABLETS) [Concomitant]

REACTIONS (2)
  - COLITIS MICROSCOPIC [None]
  - HYPOGAMMAGLOBULINAEMIA [None]
